FAERS Safety Report 13723213 (Version 1)
Quarter: 2017Q3

REPORT INFORMATION
  Report Type: Spontaneous
  Country: US (occurrence: US)
  Receive Date: 20170706
  Receipt Date: 20170706
  Transmission Date: 20171127
  Serious: Yes (Other)
  Sender: FDA-Public Use
  Company Number: US-JNJFOC-20170613727

PATIENT
  Sex: Male
  Weight: 66.1 kg

DRUGS (1)
  1. REMICADE [Suspect]
     Active Substance: INFLIXIMAB
     Indication: COLITIS ULCERATIVE
     Dosage: FIRST DOSE
     Route: 042

REACTIONS (4)
  - Colitis ulcerative [Recovering/Resolving]
  - Haemorrhoids [Recovering/Resolving]
  - Weight decreased [Recovered/Resolved]
  - Clostridium difficile infection [Recovering/Resolving]
